FAERS Safety Report 7728186-1 (Version None)
Quarter: 2011Q3

REPORT INFORMATION
  Report Type: 
  Country: None (occurrence: None)
  Receive Date: 20110905
  Receipt Date: 20110822
  Transmission Date: 20111222
  Serious: Yes (Other)
  Sender: FDA-Public Use
  Company Number: PHHY2011CA75418

PATIENT
  Sex: Female

DRUGS (1)
  1. ZOLEDRONOC ACID [Suspect]
     Indication: OSTEOPOROSIS
     Dosage: UNK UKN, UNK
     Route: 042
     Dates: start: 20100616

REACTIONS (6)
  - BACK PAIN [None]
  - PAIN IN EXTREMITY [None]
  - PAIN [None]
  - FALL [None]
  - BREAST CANCER [None]
  - MUSCULOSKELETAL PAIN [None]
